FAERS Safety Report 25216968 (Version 1)
Quarter: 2025Q2

REPORT INFORMATION
  Report Type: Spontaneous
  Country: DE (occurrence: DE)
  Receive Date: 20250419
  Receipt Date: 20250419
  Transmission Date: 20250716
  Serious: Yes (Other)
  Sender: HETERO
  Company Number: None

PATIENT
  Age: 63 Year
  Sex: Male
  Weight: 110 kg

DRUGS (2)
  1. LEVETIRACETAM [Interacting]
     Active Substance: LEVETIRACETAM
     Indication: Partial seizures
     Route: 048
     Dates: start: 20231016, end: 20250326
  2. MOVICOL [Interacting]
     Active Substance: POLYETHYLENE GLYCOL 3350\POTASSIUM CHLORIDE\SODIUM BICARBONATE\SODIUM CHLORIDE
     Indication: Product used for unknown indication
     Route: 048

REACTIONS (8)
  - Epilepsy [Recovering/Resolving]
  - Impaired quality of life [Recovering/Resolving]
  - Product communication issue [Unknown]
  - Drug monitoring procedure not performed [Unknown]
  - Labelled drug-drug interaction medication error [Unknown]
  - Product knowledge deficit [Unknown]
  - Product use complaint [Unknown]
  - Circumstance or information capable of leading to medication error [Unknown]

NARRATIVE: CASE EVENT DATE: 20250101
